FAERS Safety Report 17654588 (Version 1)
Quarter: 2020Q2

REPORT INFORMATION
  Report Type: Spontaneous
  Country: US (occurrence: US)
  Receive Date: 20200410
  Receipt Date: 20200410
  Transmission Date: 20200713
  Serious: No
  Sender: FDA-Public Use
  Company Number: US-RECORDATI RARE DISEASES-2082612

PATIENT
  Age: 32 Year
  Sex: Female

DRUGS (1)
  1. CARBAGLU [Suspect]
     Active Substance: CARGLUMIC ACID
     Indication: N-ACETYLGLUTAMATE SYNTHASE DEFICIENCY

REACTIONS (4)
  - Infection [Unknown]
  - Hand-foot-and-mouth disease [Unknown]
  - Stomatitis [Unknown]
  - Product dose omission [Unknown]
